FAERS Safety Report 8338585-5 (Version None)
Quarter: 2012Q2

REPORT INFORMATION
  Report Type: 
  Country: None (occurrence: None)
  Receive Date: 20120504
  Receipt Date: 20120423
  Transmission Date: 20120825
  Serious: Yes (Hospitalization)
  Sender: FDA-Public Use
  Company Number: US-FRI-1000030023

PATIENT
  Age: 47 Year
  Sex: Male
  Weight: 109 kg

DRUGS (5)
  1. XANAX [Concomitant]
  2. CIALIS [Concomitant]
  3. THYROID TAB [Suspect]
     Dosage: 135 MG
     Route: 048
     Dates: start: 20110101, end: 20120401
  4. MULTI-VITAMINS [Concomitant]
  5. THYROID TAB [Suspect]
     Indication: HYPOTHYROIDISM
     Dosage: 112 MG
     Route: 048
     Dates: end: 20110101

REACTIONS (7)
  - AUTOIMMUNE THYROIDITIS [None]
  - MALAISE [None]
  - TREMOR [None]
  - WEIGHT INCREASED [None]
  - THYROID CANCER [None]
  - INSOMNIA [None]
  - ANXIETY [None]
